FAERS Safety Report 8661782 (Version 5)
Quarter: 2013Q1

REPORT INFORMATION
  Report Type: Spontaneous
  Country: US (occurrence: US)
  Receive Date: 20120712
  Receipt Date: 20130205
  Transmission Date: 20140127
  Serious: Yes (Hospitalization, Other)
  Sender: FDA-Public Use
  Company Number: US-009507513-1207USA001848

PATIENT
  Sex: Female
  Weight: 58.5 kg

DRUGS (4)
  1. FOSAMAX [Suspect]
     Indication: OSTEOPOROSIS
     Dosage: 70 MG, UNK
     Route: 048
  2. PROLIA [Concomitant]
     Indication: OSTEOPOROSIS
     Dosage: 60 MG, EVERY 6 MONTHS
     Route: 058
     Dates: start: 20110923
  3. ACTONEL [Concomitant]
     Indication: OSTEOPOROSIS
     Dosage: UNK
     Dates: end: 2011
  4. CHOLECALCIFEROL [Concomitant]
     Indication: OSTEOPOROSIS
     Dosage: 1000 IU, QD
     Dates: start: 20121116

REACTIONS (32)
  - Femur fracture [Unknown]
  - Open reduction of fracture [Unknown]
  - Knee arthroplasty [Unknown]
  - Spinal fracture [Unknown]
  - Hypothyroidism [Unknown]
  - Bone disorder [Unknown]
  - Osteopenia [Unknown]
  - Thoracic vertebral fracture [Unknown]
  - Rib fracture [Unknown]
  - Fall [Unknown]
  - Anaemia [Unknown]
  - Hypertonic bladder [Unknown]
  - Glaucoma [Unknown]
  - Fall [Unknown]
  - Pernicious anaemia [Unknown]
  - Rheumatoid arthritis [Unknown]
  - Fall [Unknown]
  - Spinal fracture [Unknown]
  - Oral mucosal blistering [Unknown]
  - Gait disturbance [Unknown]
  - Balance disorder [Unknown]
  - Fatigue [Unknown]
  - Dyspnoea [Unknown]
  - Anxiety [Unknown]
  - Tremor [Unknown]
  - Vitamin D deficiency [Unknown]
  - Back pain [Unknown]
  - Drug ineffective [Unknown]
  - Pain in extremity [Unknown]
  - Arthralgia [Unknown]
  - Arthralgia [Unknown]
  - Constipation [Unknown]
